FAERS Safety Report 24659580 (Version 1)
Quarter: 2024Q4

REPORT INFORMATION
  Report Type: Spontaneous
  Country: DE (occurrence: DE)
  Receive Date: 20241125
  Receipt Date: 20241125
  Transmission Date: 20250115
  Serious: Yes (Death)
  Sender: BAYER HEALTHCARE PHARMACEUTICALS INC.
  Company Number: DE-BAYER-2024A166075

PATIENT
  Age: 83 Year
  Sex: Male

DRUGS (1)
  1. NUBEQA [Suspect]
     Active Substance: DAROLUTAMIDE
     Indication: Prostate cancer
     Dosage: 300 MG, QID
     Route: 048
     Dates: start: 202401, end: 202409

REACTIONS (6)
  - Alopecia [Fatal]
  - Dyspnoea [Fatal]
  - Faeces discoloured [Fatal]
  - Pain in extremity [Fatal]
  - Diarrhoea [Fatal]
  - Inappropriate schedule of product administration [None]

NARRATIVE: CASE EVENT DATE: 20240101
